FAERS Safety Report 9130764 (Version 2)
Quarter: 2013Q2

REPORT INFORMATION
  Report Type: Spontaneous
  Country: CA (occurrence: CA)
  Receive Date: 20130301
  Receipt Date: 20130405
  Transmission Date: 20140414
  Serious: Yes (Death, Hospitalization)
  Sender: FDA-Public Use
  Company Number: PHHY2013CA019965

PATIENT
  Age: 90 Year
  Sex: Female

DRUGS (1)
  1. ACLASTA [Suspect]
     Indication: OSTEOPOROSIS
     Dosage: UNK UKN, UNK
     Route: 042
     Dates: start: 20120420

REACTIONS (5)
  - Hepatic cirrhosis [Fatal]
  - Endometrial neoplasm [Unknown]
  - Cellulitis [Unknown]
  - Autoimmune disorder [Unknown]
  - Pulmonary embolism [Unknown]
